FAERS Safety Report 6918216-9 (Version None)
Quarter: 2010Q3

REPORT INFORMATION
  Report Type: 
  Country: None (occurrence: None)
  Receive Date: 20100806
  Receipt Date: 20100729
  Transmission Date: 20110219
  Serious: Yes (Other)
  Sender: FDA-Public Use
  Company Number: WAES 1007USA04128

PATIENT

DRUGS (3)
  1. ISENTRESS [Suspect]
     Indication: HIV INFECTION
     Dosage: PO
     Route: 048
  2. NAPROSYN [Concomitant]
  3. IBUPROFEN [Concomitant]

REACTIONS (2)
  - BACK PAIN [None]
  - BLOOD CREATININE INCREASED [None]
